FAERS Safety Report 15682950 (Version 1)
Quarter: 2018Q4

REPORT INFORMATION
  Report Type: Spontaneous
  Country: US (occurrence: US)
  Receive Date: 20181203
  Receipt Date: 20181203
  Transmission Date: 20190205
  Serious: Yes (Hospitalization, Other)
  Sender: FDA-Public Use
  Company Number: US-HETERO CORPORATE-HET2018US01471

PATIENT
  Age: 14 Year
  Sex: Male

DRUGS (3)
  1. ENTECAVIR. [Suspect]
     Active Substance: ENTECAVIR
     Indication: PRODUCT USED FOR UNKNOWN INDICATION
  2. AZATHIOPRINE. [Suspect]
     Active Substance: AZATHIOPRINE
     Indication: PRODUCT USED FOR UNKNOWN INDICATION
     Dosage: UNK
     Route: 065
  3. TACROLIMUS. [Suspect]
     Active Substance: TACROLIMUS
     Indication: PRODUCT USED FOR UNKNOWN INDICATION
     Dosage: UNK
     Route: 065

REACTIONS (15)
  - Anuria [Unknown]
  - Thrombocytopenia [Unknown]
  - Multiple organ dysfunction syndrome [Unknown]
  - Splenomegaly [Unknown]
  - Hypersplenism [Unknown]
  - Portal vein thrombosis [Unknown]
  - Aspartate aminotransferase increased [Unknown]
  - Alanine aminotransferase increased [Unknown]
  - Metabolic acidosis [Unknown]
  - Haemolysis [Unknown]
  - Renal impairment [Unknown]
  - Ventricular fibrillation [Unknown]
  - Mental status changes [Unknown]
  - Cholestasis [Unknown]
  - Status epilepticus [Unknown]
